FAERS Safety Report 7125867-8 (Version None)
Quarter: 2010Q4

REPORT INFORMATION
  Report Type: 
  Country: None (occurrence: None)
  Receive Date: 20101129
  Receipt Date: 20101118
  Transmission Date: 20110411
  Serious: Yes (Other)
  Sender: FDA-Public Use
  Company Number: US-SANOFI-AVENTIS-2010SA070409

PATIENT
  Age: 67 Year
  Sex: Male

DRUGS (2)
  1. LANTUS [Suspect]
     Dosage: 5 TO 20 UNITS
     Route: 058
  2. OPTICLICK [Suspect]

REACTIONS (2)
  - DEVICE BREAKAGE [None]
  - TOE AMPUTATION [None]
